FAERS Safety Report 7731612-5 (Version None)
Quarter: 2011Q3

REPORT INFORMATION
  Report Type: 
  Country: None (occurrence: None)
  Receive Date: 20110906
  Receipt Date: 20110602
  Transmission Date: 20111222
  Serious: No
  Sender: FDA-Public Use
  Company Number: US-AMGEN-USASP2011028556

PATIENT
  Sex: Female

DRUGS (1)
  1. PROLIA [Suspect]
     Indication: OSTEOPOROSIS POSTMENOPAUSAL
     Dosage: UNK
     Route: 058

REACTIONS (6)
  - GAIT DISTURBANCE [None]
  - MOBILITY DECREASED [None]
  - DEPRESSION [None]
  - CROHN'S DISEASE [None]
  - DIARRHOEA [None]
  - ABDOMINAL PAIN UPPER [None]
